FAERS Safety Report 7705378-9 (Version None)
Quarter: 2011Q3

REPORT INFORMATION
  Report Type: 
  Country: None (occurrence: None)
  Receive Date: 20110818
  Receipt Date: 20110805
  Transmission Date: 20111222
  Serious: Yes (Other)
  Sender: FDA-Public Use
  Company Number: AUR-APL-2011-00463

PATIENT
  Age: 38 Year
  Sex: Female
  Weight: 65 kg

DRUGS (3)
  1. AMOXICILLIN [Concomitant]
  2. MIRTAZAPINE [Suspect]
     Indication: DEPRESSION
     Dosage: (45 MG), ORAL
     Route: 048
     Dates: start: 20080101, end: 20101201
  3. ALPRAZOLAM [Concomitant]

REACTIONS (1)
  - HAEMOLYTIC ANAEMIA [None]
